FAERS Safety Report 13621952 (Version 1)
Quarter: 2017Q2

REPORT INFORMATION
  Report Type: Report from Study
  Country: CO (occurrence: CO)
  Receive Date: 20170607
  Receipt Date: 20170607
  Transmission Date: 20170830
  Serious: Yes (Other)
  Sender: FDA-Public Use
  Company Number: CO-ACTELION-A-CH2017-150635

PATIENT
  Age: 76 Year
  Sex: Female
  Weight: 53 kg

DRUGS (7)
  1. IPRATROPII BROMIDUM [Concomitant]
  2. FUROSEMIDE. [Concomitant]
     Active Substance: FUROSEMIDE
  3. ENALAPRIL [Concomitant]
     Active Substance: ENALAPRIL
     Indication: HYPERTENSION
     Dosage: UNK, Q12HRS
     Route: 048
     Dates: start: 20140101
  4. RIOCIGUAT [Suspect]
     Active Substance: RIOCIGUAT
     Indication: PRODUCT USED FOR UNKNOWN INDICATION
     Route: 065
  5. TRACLEER [Suspect]
     Active Substance: BOSENTAN
     Indication: PULMONARY ARTERIAL HYPERTENSION
     Dosage: 125 MG, Q12HRS
     Route: 048
     Dates: start: 20170103, end: 20170504
  6. CARVEDILOL. [Concomitant]
     Active Substance: CARVEDILOL
     Indication: HYPERTENSION
     Dosage: UNK, Q12HRS
     Dates: start: 20140101
  7. WARFARIN [Concomitant]
     Active Substance: WARFARIN
     Dosage: UNK, QD
     Route: 048
     Dates: start: 20140101

REACTIONS (8)
  - Dyspepsia [Recovering/Resolving]
  - Abdominal pain upper [Recovering/Resolving]
  - Food intolerance [Unknown]
  - Feeling drunk [Unknown]
  - Dizziness [Recovering/Resolving]
  - Mood altered [Unknown]
  - Chest pain [Recovered/Resolved]
  - Gastrointestinal haemorrhage [Unknown]

NARRATIVE: CASE EVENT DATE: 20170103
